FAERS Safety Report 9659815 (Version 1)
Quarter: 2013Q4

REPORT INFORMATION
  Report Type: Spontaneous
  Country: US (occurrence: US)
  Receive Date: 20131031
  Receipt Date: 20131031
  Transmission Date: 20140711
  Serious: Yes (Other)
  Sender: FDA-Public Use
  Company Number: US-JNJFOC-20131014142

PATIENT
  Age: 82 Year
  Sex: Male
  Weight: 65.77 kg

DRUGS (6)
  1. XARELTO [Suspect]
     Indication: CEREBROVASCULAR ACCIDENT PROPHYLAXIS
     Route: 048
     Dates: start: 201310
  2. XARELTO [Suspect]
     Indication: ATRIAL FIBRILLATION
     Route: 048
     Dates: start: 201310
  3. FUROSEMIDE [Concomitant]
     Route: 048
     Dates: start: 2002
  4. POTASSIUM [Concomitant]
     Route: 048
     Dates: start: 2002
  5. SOTALOL [Concomitant]
     Indication: ARRHYTHMIA
     Route: 048
     Dates: start: 201009
  6. LORAZEPAM [Concomitant]
     Indication: ANXIETY
     Route: 048
     Dates: start: 2002

REACTIONS (4)
  - Renal pain [Recovered/Resolved]
  - Hepatic pain [Recovered/Resolved]
  - Incorrect dose administered [Recovered/Resolved]
  - Dizziness [Recovered/Resolved]
